FAERS Safety Report 4408513-3 (Version None)
Quarter: 2004Q3

REPORT INFORMATION
  Report Type: 
  Country: None (occurrence: None)
  Receive Date: 20040722
  Receipt Date: 20040715
  Transmission Date: 20050211
  Serious: Yes (Life-Threatening, Hospitalization)
  Sender: FDA-Public Use
  Company Number: 200310427BVD

PATIENT
  Age: 39 Year
  Sex: Female
  Weight: 56 kg

DRUGS (2)
  1. AVELOX [Suspect]
     Indication: PNEUMONIA MYCOPLASMAL
     Dosage: 400 MG, TOTAL DAILY, ORAL
     Route: 048
  2. SPASMO-MUCOSOLVAN [Concomitant]

REACTIONS (6)
  - ANAEMIA HAEMOLYTIC AUTOIMMUNE [None]
  - GENERAL PHYSICAL HEALTH DETERIORATION [None]
  - OCULAR ICTERUS [None]
  - PALLOR [None]
  - PNEUMONIA MYCOPLASMAL [None]
  - PYREXIA [None]
